FAERS Safety Report 9496669 (Version 1)
Quarter: 2013Q3

REPORT INFORMATION
  Report Type: Spontaneous
  Country: US (occurrence: None)
  Receive Date: 20130903
  Receipt Date: 20130903
  Transmission Date: 20140515
  Serious: Yes (Hospitalization)
  Sender: FDA-Public Use
  Company Number: None

PATIENT
  Age: 64 Year
  Sex: Male
  Weight: 91.5 kg

DRUGS (2)
  1. CYTARABINE [Suspect]
  2. DAUNORUBICIN [Suspect]

REACTIONS (11)
  - Pancytopenia [None]
  - Hyponatraemia [None]
  - Blood bilirubin increased [None]
  - Hiccups [None]
  - Back pain [None]
  - Pneumonia [None]
  - Blood creatine increased [None]
  - Renal failure acute [None]
  - Dialysis [None]
  - Drug ineffective [None]
  - Bone marrow failure [None]
